FAERS Safety Report 10551998 (Version 1)
Quarter: 2014Q4

REPORT INFORMATION
  Report Type: Spontaneous
  Country: US (occurrence: None)
  Receive Date: 20141027
  Receipt Date: 20141027
  Transmission Date: 20150529
  Serious: Yes (Life-Threatening, Hospitalization, Other)
  Sender: FDA-Public Use
  Company Number: 2014COR00098

PATIENT
  Age: 16 Year
  Sex: Male

DRUGS (3)
  1. LAMOTRIGINE. [Concomitant]
     Active Substance: LAMOTRIGINE
  2. CEPHALEXIN. [Concomitant]
     Active Substance: CEPHALEXIN
  3. METHYLPHENIDATE [Suspect]
     Active Substance: METHYLPHENIDATE
     Indication: ATTENTION DEFICIT/HYPERACTIVITY DISORDER

REACTIONS (12)
  - Tachycardia [None]
  - Hallucination, auditory [None]
  - Restlessness [None]
  - Intentional overdose [None]
  - Hypertension [None]
  - Hallucination, visual [None]
  - Suicide attempt [None]
  - Impulsive behaviour [None]
  - Paranoia [None]
  - Anxiety [None]
  - Chest discomfort [None]
  - Suicidal ideation [None]
